FAERS Safety Report 5153052-8 (Version None)
Quarter: 2006Q4

REPORT INFORMATION
  Report Type: 
  Country: None (occurrence: None)
  Receive Date: 20061117
  Receipt Date: 20060927
  Transmission Date: 20070319
  Serious: Yes (Other)
  Sender: FDA-Public Use
  Company Number: AT-AMGEN-UK195152

PATIENT
  Sex: Male
  Weight: 35.2 kg

DRUGS (11)
  1. ARANESP [Suspect]
     Indication: DIALYSIS
     Route: 058
     Dates: start: 20051001
  2. CALCIUM ACETATE [Concomitant]
     Route: 065
  3. EUTHYROX [Concomitant]
     Route: 065
  4. LASIX [Concomitant]
     Route: 065
  5. VITAMIN D3 [Concomitant]
     Route: 065
  6. PLENDIL [Concomitant]
     Route: 065
  7. SELOKEN [Concomitant]
     Route: 065
  8. GUAIFENESIN W/DEXTROMETHORPHAN [Concomitant]
     Route: 065
  9. URBASON [Concomitant]
     Route: 065
  10. RED BLOOD CELLS [Concomitant]
     Route: 041
     Dates: start: 20060321
  11. ENBREL [Concomitant]
     Route: 065

REACTIONS (2)
  - APLASIA PURE RED CELL [None]
  - THERAPEUTIC RESPONSE DECREASED [None]
